FAERS Safety Report 18345950 (Version 2)
Quarter: 2021Q2

REPORT INFORMATION
  Report Type: Spontaneous
  Country: CA (occurrence: CA)
  Receive Date: 20201005
  Receipt Date: 20210430
  Transmission Date: 20210717
  Serious: Yes (Other)
  Sender: FDA-Public Use
  Company Number: CA-SAMSUNG BIOEPIS-SB-2020-30366

PATIENT
  Age: 54 Year
  Sex: Male
  Weight: 65 kg

DRUGS (3)
  1. INFLIXIMAB [Suspect]
     Active Substance: INFLIXIMAB
     Indication: ANKYLOSING SPONDYLITIS
     Route: 042
  2. MAXIDEX [Concomitant]
     Active Substance: DEXAMETHASONE
     Indication: PRODUCT USED FOR UNKNOWN INDICATION
     Dosage: UNKNOWN
     Route: 047
  3. HYDROCORTISONE. [Concomitant]
     Active Substance: HYDROCORTISONE
     Indication: PREMEDICATION
     Route: 042

REACTIONS (18)
  - Heart rate decreased [Recovered/Resolved]
  - Inappropriate schedule of product administration [Recovered/Resolved]
  - Blood pressure fluctuation [Recovered/Resolved]
  - Gastroenteritis viral [Recovered/Resolved]
  - Sneezing [Recovered/Resolved]
  - Heart rate irregular [Recovered/Resolved]
  - Intentional dose omission [Recovered/Resolved]
  - Off label use [Recovered/Resolved]
  - Aggression [Recovered/Resolved]
  - Anger [Recovered/Resolved]
  - Pyrexia [Recovered/Resolved]
  - Intentional product use issue [Recovered/Resolved]
  - Cataract [Recovered/Resolved]
  - Influenza [Recovered/Resolved]
  - Oropharyngeal pain [Recovered/Resolved]
  - Behaviour disorder [Recovered/Resolved]
  - Cough [Recovered/Resolved]
  - Weight decreased [Recovered/Resolved]
